FAERS Safety Report 6472119-5 (Version None)
Quarter: 2009Q4

REPORT INFORMATION
  Report Type: 
  Country: None (occurrence: None)
  Receive Date: 20091203
  Receipt Date: 20080701
  Transmission Date: 20100525
  Serious: Yes (Other)
  Sender: FDA-Public Use
  Company Number: US-ELI_LILLY_AND_COMPANY-US200804003979

PATIENT
  Sex: Female

DRUGS (6)
  1. HUMALOG [Suspect]
     Indication: DIABETES MELLITUS
     Dosage: 5 U, PRIOR TO EACH MEAL
  2. HUMULIN 70/30 [Suspect]
     Indication: DIABETES MELLITUS
  3. LISPRO 75LIS25NPL [Suspect]
  4. ALTACE [Concomitant]
     Indication: PROPHYLAXIS
  5. LIPITOR [Concomitant]
  6. LANTUS [Concomitant]
     Dosage: 21 U, EACH MORNING

REACTIONS (5)
  - BLOOD GLUCOSE INCREASED [None]
  - BODY TEMPERATURE DECREASED [None]
  - HYPERHIDROSIS [None]
  - HYPOGLYCAEMIA [None]
  - HYPOGLYCAEMIC UNCONSCIOUSNESS [None]
